FAERS Safety Report 8540376-7 (Version None)
Quarter: 2012Q3

REPORT INFORMATION
  Report Type: 
  Country: None (occurrence: None)
  Receive Date: 20120726
  Receipt Date: 20110919
  Transmission Date: 20120928
  Serious: No
  Sender: FDA-Public Use
  Company Number: US-ASTRAZENECA-2010SE56601

PATIENT
  Age: 81 Year
  Sex: Male
  Weight: 65.8 kg

DRUGS (3)
  1. SEROQUEL [Suspect]
     Route: 048
     Dates: start: 20090101
  2. SEROQUEL [Suspect]
     Route: 048
  3. SEROQUEL [Suspect]
     Indication: BIPOLAR DISORDER
     Route: 048

REACTIONS (4)
  - TERMINAL INSOMNIA [None]
  - INSOMNIA [None]
  - DRUG DISPENSING ERROR [None]
  - INTENTIONAL DRUG MISUSE [None]
